FAERS Safety Report 7233175-X (Version None)
Quarter: 2011Q1

REPORT INFORMATION
  Report Type: 
  Country: None (occurrence: None)
  Receive Date: 20110119
  Receipt Date: 20110103
  Transmission Date: 20110831
  Serious: Yes (Hospitalization, Congenital Anomaly)
  Sender: FDA-Public Use
  Company Number: A0793827A

PATIENT
  Sex: Male
  Weight: 3.6 kg

DRUGS (5)
  1. PAXIL CR [Suspect]
     Indication: ANXIETY
     Dosage: 12.5MG PER DAY
     Dates: start: 20061208, end: 20070323
  2. KEFLEX [Concomitant]
  3. NASONEX [Concomitant]
     Dates: start: 20070201, end: 20070601
  4. VITAMIN TAB [Concomitant]
  5. PAROXETINE [Suspect]
     Indication: POSTPARTUM DEPRESSION

REACTIONS (6)
  - ATRIAL SEPTAL DEFECT [None]
  - PULMONARY ARTERY STENOSIS CONGENITAL [None]
  - PATENT DUCTUS ARTERIOSUS [None]
  - MATERNAL DRUGS AFFECTING FOETUS [None]
  - TRANSPOSITION OF THE GREAT VESSELS [None]
  - DRUG EXPOSURE DURING PREGNANCY [None]
